FAERS Safety Report 10046640 (Version 2)
Quarter: 2014Q1

REPORT INFORMATION
  Report Type: Spontaneous
  Country: US (occurrence: US)
  Receive Date: 20140331
  Receipt Date: 20140331
  Transmission Date: 20141002
  Serious: Yes (Disabling)
  Sender: FDA-Public Use
  Company Number: US-GE HEALTHCARE MEDICAL DIAGNOSTICS-OSCN-PR-1109S-0186

PATIENT
  Age: 48 Year
  Sex: Female

DRUGS (7)
  1. OMNISCAN [Suspect]
     Indication: HYPOAESTHESIA
     Route: 042
     Dates: start: 20041117, end: 20041117
  2. OMNISCAN [Suspect]
     Indication: ASTHENIA
     Route: 042
     Dates: start: 20050512, end: 20050512
  3. OMNISCAN [Suspect]
     Indication: HYPERTENSION
     Route: 042
     Dates: start: 20060501, end: 20060501
  4. OMNISCAN [Suspect]
     Indication: PULMONARY OEDEMA
  5. OMNISCAN [Suspect]
     Indication: RENAL ARTERY STENOSIS
  6. GADOLINIUM (UNSPECIFIED) [Suspect]
     Indication: PRODUCT USED FOR UNKNOWN INDICATION
     Route: 042
     Dates: start: 20050515, end: 20050515
  7. GADOLINIUM (UNSPECIFIED) [Suspect]
     Indication: PRODUCT USED FOR UNKNOWN INDICATION
     Route: 042
     Dates: start: 20060501, end: 20060501

REACTIONS (1)
  - Nephrogenic systemic fibrosis [Not Recovered/Not Resolved]
